FAERS Safety Report 6404197-3 (Version None)
Quarter: 2009Q4

REPORT INFORMATION
  Report Type: 
  Country: None (occurrence: None)
  Receive Date: 20091016
  Receipt Date: 20091012
  Transmission Date: 20100525
  Serious: Yes (Hospitalization, Other)
  Sender: FDA-Public Use
  Company Number: DE-AMGEN-UK360292

PATIENT
  Sex: Female
  Weight: 50 kg

DRUGS (9)
  1. NPLATE [Suspect]
     Indication: IDIOPATHIC THROMBOCYTOPENIC PURPURA
     Route: 058
     Dates: start: 20090619
  2. PENICILLIN V [Concomitant]
     Route: 048
     Dates: start: 20090813
  3. NULYTELY [Concomitant]
     Route: 048
  4. PANTOPRAZOLE SODIUM [Concomitant]
     Route: 048
  5. CORTICOSTEROIDS [Concomitant]
     Dates: start: 20090507, end: 20090614
  6. IMMUNOGLOBULINS [Concomitant]
     Dates: start: 20090512, end: 20090516
  7. RITUXIMAB [Concomitant]
     Dates: start: 20090522, end: 20090611
  8. BLOOD CELLS, PACKED HUMAN [Concomitant]
     Dates: start: 20090603, end: 20090808
  9. PLATELETS [Concomitant]
     Dates: start: 20090506, end: 20090729

REACTIONS (4)
  - PULMONARY EMBOLISM [None]
  - THROMBOCYTOPENIA [None]
  - THROMBOCYTOSIS [None]
  - THROMBOSIS [None]
